FAERS Safety Report 4518147-8 (Version None)
Quarter: 2004Q4

REPORT INFORMATION
  Report Type: 
  Country: None (occurrence: None)
  Receive Date: 20041130
  Receipt Date: 20041117
  Transmission Date: 20050328
  Serious: Yes (Other)
  Sender: FDA-Public Use
  Company Number: S04-USA-05880-01

PATIENT
  Age: 44 Year
  Sex: Female

DRUGS (11)
  1. LEXAPRO [Suspect]
     Indication: ANXIETY DISORDER
     Dosage: 20 MG QD PO
     Route: 048
     Dates: start: 20040101, end: 20040101
  2. LEXAPRO [Suspect]
     Indication: ANXIETY DISORDER
     Dates: start: 20040101, end: 20040101
  3. LEXAPRO [Suspect]
     Indication: ANXIETY DISORDER
     Dosage: 10 MG QD PO
     Route: 048
     Dates: start: 20040901
  4. LEXAPRO [Suspect]
     Indication: ANXIETY DISORDER
     Dosage: 5 MG QD PO
     Route: 048
     Dates: start: 20040601, end: 20040101
  5. LEXAPRO [Suspect]
     Indication: ANXIETY DISORDER
     Dosage: 10 MG QD PO
     Route: 048
     Dates: start: 20040101, end: 20040101
  6. TIGAN [Suspect]
     Indication: NAUSEA
  7. FENTANYL [Concomitant]
  8. KLONOPIN [Concomitant]
  9. TRAZODONE HCL [Concomitant]
  10. VICODIN [Concomitant]
  11. ESTROGEN [Concomitant]

REACTIONS (10)
  - AMNESIA [None]
  - COMPLEX PARTIAL SEIZURES [None]
  - CONFUSIONAL STATE [None]
  - DRUG INTERACTION [None]
  - ELECTROENCEPHALOGRAM ABNORMAL [None]
  - EYE ROLLING [None]
  - FATIGUE [None]
  - HEADACHE [None]
  - MENTAL DISORDER [None]
  - TARDIVE DYSKINESIA [None]
